FAERS Safety Report 8737931 (Version 2)
Quarter: 2013Q4

REPORT INFORMATION
  Report Type: Spontaneous
  Country: US (occurrence: US)
  Receive Date: 20120823
  Receipt Date: 20131101
  Transmission Date: 20140711
  Serious: No
  Sender: FDA-Public Use
  Company Number: US-009507513-1207USA009704

PATIENT
  Age: 27 Year
  Sex: Female

DRUGS (2)
  1. CELESTONE [Suspect]
     Indication: LIMB DISCOMFORT
     Dosage: UNK
     Route: 030
     Dates: start: 20120427
  2. ZOLOFT [Concomitant]

REACTIONS (4)
  - Dyspepsia [Not Recovered/Not Resolved]
  - Upper respiratory tract infection [Not Recovered/Not Resolved]
  - Weight decreased [Not Recovered/Not Resolved]
  - Muscle atrophy [Not Recovered/Not Resolved]
